FAERS Safety Report 5278859-8 (Version None)
Quarter: 2007Q1

REPORT INFORMATION
  Report Type: 
  Country: None (occurrence: None)
  Receive Date: 20061208
  Receipt Date: 20060323
  Transmission Date: 20070707
  Serious: No
  Sender: FDA-Public Use
  Company Number: 2005UW16368

PATIENT
  Age: 57 Year
  Sex: Male
  Weight: 88.905 kg

DRUGS (1)
  1. CRESTOR [Suspect]
     Indication: BLOOD CHOLESTEROL
     Dosage: 20 MG QE PO
     Route: 048
     Dates: start: 20040608, end: 20040709

REACTIONS (1)
  - RENAL FAILURE [None]
